FAERS Safety Report 5312731-X (Version None)
Quarter: 2007Q2

REPORT INFORMATION
  Report Type: 
  Country: None (occurrence: None)
  Receive Date: 20070430
  Receipt Date: 20070423
  Transmission Date: 20071010
  Serious: Yes (Life-Threatening)
  Sender: FDA-Public Use
  Company Number: HQWYE801224APR07

PATIENT
  Sex: Female
  Weight: 41 kg

DRUGS (1)
  1. CEFSPAN [Suspect]
     Indication: CYSTITIS
     Route: 048
     Dates: start: 20070404, end: 20070404

REACTIONS (3)
  - DYSPNOEA [None]
  - FEELING COLD [None]
  - TREMOR [None]
